FAERS Safety Report 14826458 (Version 2)
Quarter: 2018Q2

REPORT INFORMATION
  Report Type: Spontaneous
  Country: RU (occurrence: RU)
  Receive Date: 20180430
  Receipt Date: 20180507
  Transmission Date: 20180711
  Serious: Yes (Life-Threatening)
  Sender: FDA-Public Use
  Company Number: RU-ALLERGAN-1823319US

PATIENT
  Age: 16 Year
  Sex: Female

DRUGS (4)
  1. AMPHETAMINE [Suspect]
     Active Substance: AMPHETAMINE
     Indication: PRODUCT USED FOR UNKNOWN INDICATION
     Dosage: 2 DF, UNK
     Route: 065
  2. MILNACIPRAN - BP [Suspect]
     Active Substance: MILNACIPRAN
     Indication: DEPRESSION
     Dosage: 1250 MG, SINGLE
     Route: 048
     Dates: start: 20180418, end: 20180418
  3. MILNACIPRAN - BP [Suspect]
     Active Substance: MILNACIPRAN
     Dosage: 25 MG, BID
     Route: 048
     Dates: start: 20180418
  4. CANNABIDIOL [Suspect]
     Active Substance: CANNABIDIOL
     Indication: PRODUCT USED FOR UNKNOWN INDICATION
     Dosage: UNK
     Route: 065

REACTIONS (7)
  - Intentional overdose [Unknown]
  - Lethargy [Recovered/Resolved]
  - Off label use [Unknown]
  - Psychomotor skills impaired [Recovered/Resolved]
  - Suicide attempt [Unknown]
  - Off label use [Unknown]
  - Intentional product misuse [Unknown]

NARRATIVE: CASE EVENT DATE: 20180418
